FAERS Safety Report 7720614-0 (Version None)
Quarter: 2011Q3

REPORT INFORMATION
  Report Type: 
  Country: None (occurrence: None)
  Receive Date: 20110831
  Receipt Date: 20110819
  Transmission Date: 20111222
  Serious: Yes (Hospitalization, Other)
  Sender: FDA-Public Use
  Company Number: PHEH2010US00476

PATIENT
  Sex: Female
  Weight: 77.098 kg

DRUGS (19)
  1. ZOMETA [Suspect]
     Indication: BREAST CANCER METASTATIC
     Dosage: 4 MG, QMO
     Route: 042
     Dates: start: 20030401, end: 20070101
  2. CELEBREX [Concomitant]
  3. ALBUTEROL SULFATE AUTOHALER [Concomitant]
  4. CELEXA [Concomitant]
  5. VITAMIN B-12 [Concomitant]
  6. LUPRON [Concomitant]
  7. VICODIN [Concomitant]
  8. MYLANTA [Concomitant]
  9. RESTORIL [Concomitant]
  10. SOLU-MEDROL [Concomitant]
  11. COLACE [Concomitant]
  12. TAMOXIFEN CITRATE [Concomitant]
  13. ATIVAN [Concomitant]
  14. PREDNISONE [Concomitant]
  15. DECADRON [Concomitant]
     Dosage: 10 MG,
     Route: 042
  16. ATROVENT [Concomitant]
  17. PROTONIX [Concomitant]
  18. ZOMETA [Suspect]
     Indication: METASTASES TO BONE
  19. TAMOXIFEN CITRATE [Concomitant]
     Dosage: 20 MG, QD
     Route: 048

REACTIONS (44)
  - OSTEONECROSIS OF JAW [None]
  - COMPRESSION FRACTURE [None]
  - PYREXIA [None]
  - DECREASED INTEREST [None]
  - SPINAL OSTEOARTHRITIS [None]
  - DENTAL CARIES [None]
  - CHRONIC OBSTRUCTIVE PULMONARY DISEASE [None]
  - HOT FLUSH [None]
  - ERYTHEMA [None]
  - OSTEOMYELITIS [None]
  - LEUKOCYTOSIS [None]
  - PHYSICAL DISABILITY [None]
  - PAIN [None]
  - VOMITING [None]
  - HEADACHE [None]
  - EXPOSED BONE IN JAW [None]
  - RADICULOPATHY [None]
  - ELECTROLYTE IMBALANCE [None]
  - PERIODONTAL DISEASE [None]
  - CELLULITIS [None]
  - GENERAL PHYSICAL HEALTH DETERIORATION [None]
  - HYPOKALAEMIA [None]
  - VENOUS THROMBOSIS [None]
  - PAIN IN JAW [None]
  - LYMPHADENOPATHY [None]
  - LOOSE TOOTH [None]
  - SPINAL COLUMN STENOSIS [None]
  - DEHYDRATION [None]
  - LETHARGY [None]
  - SWELLING [None]
  - OSTEOARTHRITIS [None]
  - NEUROMYOPATHY [None]
  - HYPOAESTHESIA [None]
  - LACERATION [None]
  - POLYCYTHAEMIA [None]
  - ANXIETY [None]
  - DIARRHOEA [None]
  - GASTROENTERITIS VIRAL [None]
  - SEXUAL DYSFUNCTION [None]
  - WEIGHT DECREASED [None]
  - POOR PERIPHERAL CIRCULATION [None]
  - CONTUSION [None]
  - HIATUS HERNIA [None]
  - BALANCE DISORDER [None]
